FAERS Safety Report 5642477-X (Version None)
Quarter: 2008Q1

REPORT INFORMATION
  Report Type: 
  Country: None (occurrence: None)
  Receive Date: 20080227
  Receipt Date: 20080227
  Transmission Date: 20080703
  Serious: Yes (Other)
  Sender: FDA-Public Use
  Company Number: None

PATIENT
  Age: 72 Year
  Sex: Female

DRUGS (6)
  1. FOSAMAX [Suspect]
     Indication: OSTEOPOROSIS
     Dosage: 10MG DAILY
     Dates: end: 20050613
  2. CLARINEX [Concomitant]
  3. PRAVACHOL [Concomitant]
  4. METROGEN [Concomitant]
  5. FLUOUNINIDE TOPICAL [Concomitant]
  6. RHINOCORT [Concomitant]

REACTIONS (1)
  - OSTEONECROSIS [None]
